FAERS Safety Report 5468844-5 (Version None)
Quarter: 2007Q3

REPORT INFORMATION
  Report Type: 
  Country: None (occurrence: None)
  Receive Date: 20070926
  Receipt Date: 20070914
  Transmission Date: 20080115
  Serious: Yes (Other)
  Sender: FDA-Public Use
  Company Number: GB-PFIZER INC-2007077645

PATIENT
  Age: 31 Year
  Sex: Male

DRUGS (4)
  1. LYRICA [Suspect]
     Indication: BACK PAIN
     Route: 048
  2. MIRTAZAPINE [Concomitant]
  3. DICLOFENAC [Concomitant]
  4. OPIOIDS [Concomitant]

REACTIONS (2)
  - DRUG INEFFECTIVE [None]
  - POST-TRAUMATIC STRESS DISORDER [None]
